FAERS Safety Report 14679082 (Version 2)
Quarter: 2018Q2

REPORT INFORMATION
  Report Type: Report from Study
  Country: MX (occurrence: MX)
  Receive Date: 20180326
  Receipt Date: 20180405
  Transmission Date: 20180711
  Serious: Yes (Other)
  Sender: FDA-Public Use
  Company Number: PHHY2018MX049790

PATIENT
  Sex: Female
  Weight: 62 kg

DRUGS (1)
  1. ACLASTA [Suspect]
     Active Substance: ZOLEDRONIC ACID
     Indication: OSTEOPOROSIS
     Dosage: 1 DF (5/100 MG), Q12MO
     Route: 042
     Dates: start: 2008, end: 2008

REACTIONS (6)
  - Spinal disorder [Unknown]
  - Osteoporosis [Unknown]
  - Condition aggravated [Unknown]
  - Tooth loss [Unknown]
  - Urinary tract infection [Not Recovered/Not Resolved]
  - Tachycardia [Recovered/Resolved]
